FAERS Safety Report 6923479-X (Version None)
Quarter: 2010Q3

REPORT INFORMATION
  Report Type: 
  Country: None (occurrence: None)
  Receive Date: 20100813
  Receipt Date: 20100806
  Transmission Date: 20110219
  Serious: Yes (Other)
  Sender: FDA-Public Use
  Company Number: B0669758A

PATIENT
  Sex: Female

DRUGS (1)
  1. ALLI [Suspect]
     Dosage: 60MG TWICE PER DAY
     Route: 065

REACTIONS (1)
  - HAEMATOCHEZIA [None]
